FAERS Safety Report 9807778 (Version 1)
Quarter: 2014Q1

REPORT INFORMATION
  Report Type: Spontaneous
  Country: US (occurrence: US)
  Receive Date: 20140110
  Receipt Date: 20140110
  Transmission Date: 20141002
  Serious: Yes (Death)
  Sender: FDA-Public Use
  Company Number: US-BAYER-2014-002002

PATIENT
  Age: 81 Year
  Sex: Male

DRUGS (4)
  1. NAPROXEN SODIUM ({= 220 MG) [Suspect]
  2. ACETAMINOPHEN [Suspect]
  3. HYDROCODONE [Suspect]
  4. ACETAMINOPHEN W/HYDROCODONE [Suspect]

REACTIONS (1)
  - Toxicity to various agents [Fatal]
